FAERS Safety Report 4362419-7 (Version None)
Quarter: 2004Q2

REPORT INFORMATION
  Report Type: 
  Country: None (occurrence: None)
  Receive Date: 20040518
  Receipt Date: 20040503
  Transmission Date: 20050107
  Serious: Yes (Hospitalization)
  Sender: FDA-Public Use
  Company Number: 194028

PATIENT
  Age: 54 Year
  Sex: Female

DRUGS (18)
  1. AVONEX [Suspect]
     Indication: MULTIPLE SCLEROSIS
     Dosage: 30 MCG QW IM
     Dates: start: 20011001, end: 20031001
  2. AVONEX [Suspect]
     Indication: MULTIPLE SCLEROSIS
     Dosage: 30 MCG QW IM
     Dates: start: 20031001, end: 20040101
  3. OXYTROL [Concomitant]
  4. KLONOPIN [Concomitant]
  5. MOTRIN [Concomitant]
  6. PROVIGIL [Concomitant]
  7. REGLAN [Concomitant]
  8. NEXIUM [Concomitant]
  9. ELMIRON [Concomitant]
  10. DITROPAN [Concomitant]
  11. ACCUPRIL [Concomitant]
  12. PAXIL [Concomitant]
  13. ADVAIR DISKUS 100/50 [Concomitant]
  14. NEURONTIN [Concomitant]
  15. METHADONE HCL [Concomitant]
  16. VITAMIN C [Concomitant]
  17. KEFLEX [Concomitant]
  18. DANTRIUM [Concomitant]

REACTIONS (11)
  - ASTHENIA [None]
  - ATAXIA [None]
  - CONGENITAL EYE NAEVUS [None]
  - COORDINATION ABNORMAL [None]
  - CYSTITIS [None]
  - FALL [None]
  - HAEMATOCRIT DECREASED [None]
  - HAEMOGLOBIN DECREASED [None]
  - INFLUENZA LIKE ILLNESS [None]
  - PNEUMONIA [None]
  - RED BLOOD CELL COUNT DECREASED [None]
